FAERS Safety Report 9030811 (Version 1)
Quarter: 2013Q1

REPORT INFORMATION
  Report Type: Report from Study
  Country: US (occurrence: US)
  Receive Date: 20130123
  Receipt Date: 20130123
  Transmission Date: 20140127
  Serious: Yes (Hospitalization)
  Sender: FDA-Public Use
  Company Number: US-ROCHE-1179581

PATIENT
  Age: 67 Year
  Sex: Female
  Weight: 72 kg

DRUGS (3)
  1. BEVACIZUMAB [Suspect]
     Indication: OVARIAN CANCER
     Dosage: DATE OF LAST DOSE PRIOR TO SAE:07/NOV/2012
     Route: 042
     Dates: start: 20111214
  2. CARBOPLATIN [Suspect]
     Indication: OVARIAN CANCER
     Dosage: AUC 6
     Route: 042
     Dates: start: 20111121
  3. PACLITAXEL [Suspect]
     Indication: OVARIAN CANCER
     Route: 042
     Dates: start: 20111121

REACTIONS (5)
  - Confusional state [Recovering/Resolving]
  - Depression [Recovering/Resolving]
  - Disturbance in attention [Recovering/Resolving]
  - Cerebral ischaemia [Recovering/Resolving]
  - Cerebrovascular accident [Recovering/Resolving]
